FAERS Safety Report 12740060 (Version 1)
Quarter: 2016Q3

REPORT INFORMATION
  Report Type: Spontaneous
  Country: IT (occurrence: IT)
  Receive Date: 20160913
  Receipt Date: 20160913
  Transmission Date: 20161109
  Serious: Yes (Hospitalization)
  Sender: FDA-Public Use
  Company Number: IT-PFIZER INC-2016422410

PATIENT
  Age: 74 Year
  Sex: Male
  Weight: 90 kg

DRUGS (7)
  1. CARDICOR [Concomitant]
     Active Substance: BISOPROLOL
     Dosage: 1.25 MG, 5 DAYS A WEEK
  2. CORDARONE [Concomitant]
     Active Substance: AMIODARONE HYDROCHLORIDE
     Indication: MYOCARDIAL ISCHAEMIA
     Dosage: 200 MG, 5 DAYS A WEEK
  3. PANTOPRAZOLE [Concomitant]
     Active Substance: PANTOPRAZOLE SODIUM
     Indication: PROPHYLAXIS AGAINST GASTROINTESTINAL ULCER
     Dosage: 40 MG, UNK
     Route: 048
  4. TORVAST [Suspect]
     Active Substance: ATORVASTATIN
     Indication: HYPERCHOLESTEROLAEMIA
     Dosage: 20 MG, DAILY
     Route: 048
     Dates: end: 20160801
  5. FOLINA /00024201/ [Concomitant]
     Active Substance: FOLIC ACID
     Dosage: 5 MG, 5 DAYS A WEEK
     Route: 048
  6. EUTIROX [Concomitant]
     Active Substance: LEVOTHYROXINE SODIUM
     Indication: HYPOTHYROIDISM
     Dosage: 100 UG, UNK
     Route: 048
  7. CARDIOASPIRIN [Concomitant]
     Active Substance: ASPIRIN
     Dosage: 100 MG, 5 DAYS A WEEK
     Route: 048

REACTIONS (3)
  - Rhabdomyolysis [Recovered/Resolved]
  - Muscular weakness [Recovered/Resolved]
  - Gait disturbance [Recovered/Resolved]

NARRATIVE: CASE EVENT DATE: 20160801
